FAERS Safety Report 9216763 (Version 1)
Quarter: 2013Q2

REPORT INFORMATION
  Report Type: Spontaneous
  Country: US (occurrence: US)
  Receive Date: 20130408
  Receipt Date: 20130408
  Transmission Date: 20140414
  Serious: No
  Sender: FDA-Public Use
  Company Number: US-PFIZER INC-2013109901

PATIENT
  Sex: Male
  Weight: 35.4 kg

DRUGS (4)
  1. QUILLIVANT XR [Suspect]
     Indication: ATTENTION DEFICIT/HYPERACTIVITY DISORDER
     Dosage: UNK, DAILY
     Dates: start: 201303
  2. DAYTRANA [Suspect]
     Indication: ATTENTION DEFICIT/HYPERACTIVITY DISORDER
     Dosage: UNK
  3. CONCERTA [Suspect]
     Indication: ATTENTION DEFICIT/HYPERACTIVITY DISORDER
     Dosage: 36 MG, UNK
  4. CONCERTA [Suspect]
     Dosage: 56 MG, UNK

REACTIONS (3)
  - Poor quality drug administered [Unknown]
  - Incorrect storage of drug [Unknown]
  - Drug intolerance [Unknown]
